FAERS Safety Report 12114071 (Version 1)
Quarter: 2016Q1

REPORT INFORMATION
  Report Type: Spontaneous
  Country: US (occurrence: None)
  Receive Date: 20160224
  Receipt Date: 20160224
  Transmission Date: 20160526
  Serious: Yes (Other)
  Sender: FDA-Public Use
  Company Number: None

PATIENT
  Age: 52 Year
  Sex: Female
  Weight: 92.5 kg

DRUGS (1)
  1. PACLITAXEL. [Suspect]
     Active Substance: PACLITAXEL
     Indication: NEOPLASM MALIGNANT
     Dosage: 164MG ONE TIME DOSE
     Route: 042
     Dates: start: 20160222, end: 20160222

REACTIONS (4)
  - Chest discomfort [None]
  - Erythema [None]
  - Dyspnoea [None]
  - Infusion related reaction [None]

NARRATIVE: CASE EVENT DATE: 20160222
